FAERS Safety Report 8779776 (Version 1)
Quarter: 2012Q4

REPORT INFORMATION
  Report Type: 
  Country: US (occurrence: US)
  Receive Date: 20120912
  Receipt Date: 20120912
  Transmission Date: 20130627
  Serious: No
  Sender: FDA-Public Use
  Company Number: US-VERTEX PHARMACEUTICAL INC.-AE-2011-001819

PATIENT

DRUGS (15)
  1. INCIVEK [Suspect]
     Indication: HEPATITIS C
     Route: 048
     Dates: start: 20110919, end: 201112
  2. PEGASYS [Concomitant]
     Indication: HEPATITIS C
     Route: 058
     Dates: start: 20110922
  3. RIBAVIRIN [Concomitant]
     Indication: HEPATITIS C
     Route: 048
     Dates: start: 20110919
  4. COLACE [Concomitant]
     Indication: LAXATIVE SUPPORTIVE CARE
  5. HEART MEDICATION [Concomitant]
  6. ALDACTONE [Concomitant]
     Indication: DIURETIC THERAPY
     Route: 048
  7. BETA BLOCKER [Concomitant]
  8. ALLOPURINOL [Concomitant]
     Indication: GOUT
     Route: 048
  9. BENADRYL [Concomitant]
     Indication: SLEEP DISORDER
     Route: 048
  10. CLONAZEPAM [Concomitant]
     Indication: PAIN
     Route: 048
  11. DILAUDID [Concomitant]
     Indication: PAIN
     Route: 048
  12. LACTOLOSE [Concomitant]
     Indication: LAXATIVE SUPPORTIVE CARE
     Route: 048
  13. PAXIL [Concomitant]
     Indication: PROPHYLAXIS
  14. TRIAMETERENE HCL [Concomitant]
     Indication: HYPERTENSION
     Route: 048
  15. WARFARIN [Concomitant]

REACTIONS (3)
  - Rash [Unknown]
  - Rectal haemorrhage [Not Recovered/Not Resolved]
  - Nausea [Not Recovered/Not Resolved]
